APPROVED DRUG PRODUCT: VASOPRESSIN
Active Ingredient: VASOPRESSIN
Strength: 20UNITS/ML (20UNITS/ML)
Dosage Form/Route: SOLUTION;INTRAVENOUS
Application: A213988 | Product #001 | TE Code: AP
Applicant: DR REDDYS LABORATORIES LTD
Approved: May 8, 2024 | RLD: No | RS: No | Type: RX